FAERS Safety Report 9834006 (Version 5)
Quarter: 2014Q2

REPORT INFORMATION
  Report Type: Spontaneous
  Country: GB (occurrence: GB)
  Receive Date: 20140122
  Receipt Date: 20140502
  Transmission Date: 20141212
  Serious: Yes (Other)
  Sender: FDA-Public Use
  Company Number: GB-JNJFOC-20140108155

PATIENT
  Sex: Female

DRUGS (26)
  1. CETIRIZINE HYDROCHLORIDE [Suspect]
     Indication: URTICARIA CHRONIC
     Route: 065
  2. CETIRIZINE HYDROCHLORIDE [Suspect]
     Indication: ANGIOEDEMA
     Route: 065
  3. CICLOSPORIN [Suspect]
     Indication: URTICARIA CHRONIC
  4. CICLOSPORIN [Suspect]
     Indication: URTICARIA CHRONIC
  5. CICLOSPORIN [Suspect]
     Indication: ANGIOEDEMA
  6. CICLOSPORIN [Suspect]
     Indication: ANGIOEDEMA
  7. DAPSONE [Suspect]
     Indication: URTICARIA CHRONIC
     Route: 065
  8. DAPSONE [Suspect]
     Indication: URTICARIA CHRONIC
     Route: 065
  9. DAPSONE [Suspect]
     Indication: ANGIOEDEMA
     Route: 065
  10. DAPSONE [Suspect]
     Indication: ANGIOEDEMA
     Route: 065
  11. FEXOFENADINE [Suspect]
     Indication: URTICARIA CHRONIC
     Route: 065
  12. FEXOFENADINE [Suspect]
     Indication: ANGIOEDEMA
     Route: 065
  13. HYDROXYCHLOROQUINE [Suspect]
     Indication: URTICARIA CHRONIC
     Dosage: 400MG OR 200MG
     Route: 065
  14. HYDROXYCHLOROQUINE [Suspect]
     Indication: URTICARIA CHRONIC
     Dosage: 400MG OR 200MG
     Route: 065
  15. HYDROXYCHLOROQUINE [Suspect]
     Indication: ANGIOEDEMA
     Dosage: 400MG OR 200MG
     Route: 065
  16. HYDROXYCHLOROQUINE [Suspect]
     Indication: ANGIOEDEMA
     Dosage: 400MG OR 200MG
     Route: 065
  17. HYDROXYZINE [Suspect]
     Indication: URTICARIA CHRONIC
     Route: 065
  18. HYDROXYZINE [Suspect]
     Indication: ANGIOEDEMA
     Route: 065
  19. LORATADINE [Suspect]
     Indication: URTICARIA CHRONIC
     Route: 048
  20. LORATADINE [Suspect]
     Indication: ANGIOEDEMA
     Route: 048
  21. METHOTREXATE [Suspect]
     Indication: URTICARIA CHRONIC
     Route: 048
  22. METHOTREXATE [Suspect]
     Indication: ANGIOEDEMA
     Route: 048
  23. PREDNISOLONE [Suspect]
     Indication: URTICARIA CHRONIC
     Dosage: 25MG TO 40MG FOR 2 TO 3 WEEKS
     Route: 065
  24. PREDNISOLONE [Suspect]
     Indication: URTICARIA CHRONIC
     Dosage: 25MG TO 40MG FOR 2 TO 3 WEEKS
     Route: 065
  25. PREDNISOLONE [Suspect]
     Indication: ANGIOEDEMA
     Dosage: 25MG TO 40MG FOR 2 TO 3 WEEKS
     Route: 065
  26. PREDNISOLONE [Suspect]
     Indication: ANGIOEDEMA
     Dosage: 25MG TO 40MG FOR 2 TO 3 WEEKS
     Route: 065

REACTIONS (6)
  - Angioedema [Not Recovered/Not Resolved]
  - Urticaria [Not Recovered/Not Resolved]
  - Blood pressure increased [Unknown]
  - Asthma [Not Recovered/Not Resolved]
  - Drug ineffective [Unknown]
  - Drug effect incomplete [Not Recovered/Not Resolved]
